FAERS Safety Report 6419045-5 (Version None)
Quarter: 2009Q4

REPORT INFORMATION
  Report Type: 
  Country: None (occurrence: None)
  Receive Date: 20091029
  Receipt Date: 20090928
  Transmission Date: 20100525
  Serious: No
  Sender: FDA-Public Use
  Company Number: US-BAYER-200934576NA

PATIENT
  Age: 27 Year
  Sex: Female
  Weight: 68 kg

DRUGS (1)
  1. MIRENA [Suspect]
     Indication: CONTRACEPTION
     Dosage: CONTINUOUS DELIVERY
     Route: 015
     Dates: start: 20090601, end: 20090901

REACTIONS (5)
  - ABDOMINAL PAIN [None]
  - DEVICE EXPULSION [None]
  - DYSMENORRHOEA [None]
  - MENSTRUATION IRREGULAR [None]
  - VAGINAL HAEMORRHAGE [None]
